FAERS Safety Report 4639413-1 (Version None)
Quarter: 2005Q2

REPORT INFORMATION
  Report Type: 
  Country: None (occurrence: None)
  Receive Date: 20050418
  Receipt Date: 20050407
  Transmission Date: 20051028
  Serious: No
  Sender: FDA-Public Use
  Company Number: 05H-163-0296909-00

PATIENT

DRUGS (1)
  1. MAGNESIUM SULFATE [Suspect]
     Indication: DRUG EXPOSURE DURING PREGNANCY
     Dosage: I.U.

REACTIONS (2)
  - CEREBROVASCULAR DISORDER [None]
  - DRUG EXPOSURE DURING PREGNANCY [None]
